FAERS Safety Report 15969748 (Version 1)
Quarter: 2019Q1

REPORT INFORMATION
  Report Type: Spontaneous
  Country: US (occurrence: US)
  Receive Date: 20190215
  Receipt Date: 20190215
  Transmission Date: 20190418
  Serious: No
  Sender: FDA-Public Use
  Company Number: US-ELI_LILLY_AND_COMPANY-US201901012682

PATIENT
  Age: 58 Year
  Sex: Female

DRUGS (1)
  1. EMGALITY [Suspect]
     Active Substance: GALCANEZUMAB-GNLM
     Indication: MIGRAINE
     Dosage: UNK, UNKNOWN
     Route: 065
     Dates: start: 20181130, end: 20190125

REACTIONS (8)
  - Immune system disorder [Unknown]
  - Hormone level abnormal [Unknown]
  - Myalgia [Unknown]
  - Night sweats [Unknown]
  - Arthralgia [Unknown]
  - Fatigue [Unknown]
  - Drug ineffective [Unknown]
  - Mobility decreased [Unknown]

NARRATIVE: CASE EVENT DATE: 20181130
